FAERS Safety Report 7564060-1 (Version None)
Quarter: 2011Q2

REPORT INFORMATION
  Report Type: 
  Country: None (occurrence: None)
  Receive Date: 20110622
  Receipt Date: 20110620
  Transmission Date: 20111010
  Serious: Yes (Hospitalization)
  Sender: FDA-Public Use
  Company Number: US-VERTEX PHARMACEUTICALS INC.-AE-2011-000321

PATIENT
  Sex: Male

DRUGS (7)
  1. CLARITIN [Concomitant]
  2. MOTRIN [Concomitant]
  3. PENTAZOCINE LACTATE [Concomitant]
  4. PERCOCET [Concomitant]
  5. INCIVEK [Suspect]
     Indication: HEPATITIS C
     Dates: start: 20110615
  6. CHLORTHALIDONE [Concomitant]
  7. ATENOLOL [Concomitant]

REACTIONS (3)
  - DEHYDRATION [None]
  - BLOOD POTASSIUM ABNORMAL [None]
  - BLOOD SODIUM ABNORMAL [None]
